FAERS Safety Report 4796881-2 (Version None)
Quarter: 2005Q4

REPORT INFORMATION
  Report Type: 
  Country: None (occurrence: None)
  Receive Date: 20051006
  Receipt Date: 20051006
  Transmission Date: 20060501
  Serious: Yes (Life-Threatening, Hospitalization)
  Sender: FDA-Public Use
  Company Number: None

PATIENT
  Age: 44 Year
  Sex: Male
  Weight: 80 kg

DRUGS (8)
  1. TACROLIMUS [Suspect]
     Indication: LUNG TRANSPLANT
     Dosage: 3 MG PO BID
     Route: 048
     Dates: start: 20041209, end: 20041211
  2. AZATHIOPRINE [Concomitant]
  3. CAFEPIME [Concomitant]
  4. NYSTATIN [Concomitant]
  5. BACTRIM [Concomitant]
  6. VALGAMCICLOVIR [Concomitant]
  7. VANCOMYCIN [Concomitant]
  8. METHYLPRED [Concomitant]

REACTIONS (3)
  - CONFUSIONAL STATE [None]
  - IMMUNOSUPPRESSANT DRUG LEVEL INCREASED [None]
  - MENTAL STATUS CHANGES [None]
